FAERS Safety Report 12579160 (Version 2)
Quarter: 2016Q4

REPORT INFORMATION
  Report Type: Report from Study
  Country: US (occurrence: US)
  Receive Date: 20160721
  Receipt Date: 20161109
  Transmission Date: 20170207
  Serious: Yes (Other)
  Sender: FDA-Public Use
  Company Number: US-APOPHARMA-2016AP009847

PATIENT
  Age: 9 Year
  Sex: Female
  Weight: 33 kg

DRUGS (5)
  1. FERRIPROX [Suspect]
     Active Substance: DEFERIPRONE
     Indication: THALASSAEMIA
     Dosage: 15 MG/KG, TID
     Route: 048
     Dates: start: 20160421, end: 201604
  2. FERRIPROX [Suspect]
     Active Substance: DEFERIPRONE
     Dosage: 15 MG/KG, BID
     Route: 048
  3. DEFERASIROX [Concomitant]
     Active Substance: DEFERASIROX
     Indication: HAEMOCHROMATOSIS
     Dosage: 900 MG, UNKNOWN
     Route: 065
     Dates: start: 201607
  4. FERRIPROX [Suspect]
     Active Substance: DEFERIPRONE
     Indication: HAEMOCHROMATOSIS
     Dosage: 15 MG/KG, TID
     Route: 048
  5. FERRIPROX [Suspect]
     Active Substance: DEFERIPRONE
     Dosage: 15 MG/KG, TID
     Route: 048

REACTIONS (1)
  - Neutrophil count decreased [Recovered/Resolved]

NARRATIVE: CASE EVENT DATE: 201606
